FAERS Safety Report 6023095-0 (Version None)
Quarter: 2008Q4

REPORT INFORMATION
  Report Type: 
  Country: None (occurrence: None)
  Receive Date: 20081223
  Receipt Date: 20081209
  Transmission Date: 20090506
  Serious: Yes (Death, Hospitalization, Other)
  Sender: FDA-Public Use
  Company Number: 55018

PATIENT
  Age: 55 Year
  Sex: Female

DRUGS (1)
  1. AZATHIOPRINE SODIUM [Suspect]
     Indication: IMMUNOSUPPRESSION
     Dosage: 2MG/KG, DAILY

REACTIONS (10)
  - CHOLANGITIS ACUTE [None]
  - GASTROENTERITIS ESCHERICHIA COLI [None]
  - HEPATIC FIBROSIS [None]
  - HEPATIC NECROSIS [None]
  - HEPATITIS [None]
  - MULTI-ORGAN FAILURE [None]
  - SEPTIC SHOCK [None]
  - T-LYMPHOCYTE COUNT DECREASED [None]
  - VARICES OESOPHAGEAL [None]
  - WEIGHT DECREASED [None]
